FAERS Safety Report 13277721 (Version 1)
Quarter: 2017Q1

REPORT INFORMATION
  Report Type: Spontaneous
  Country: CH (occurrence: CH)
  Receive Date: 20170228
  Receipt Date: 20170228
  Transmission Date: 20170428
  Serious: Yes (Death)
  Sender: FDA-Public Use
  Company Number: CH-LPDUSPRD-20170206

PATIENT
  Age: 81 Year
  Sex: Male

DRUGS (8)
  1. AVASTIN [Concomitant]
     Active Substance: BEVACIZUMAB
     Dosage: 6 X 400MG
     Route: 065
     Dates: start: 20120419, end: 20130812
  2. VITARUBIN [Concomitant]
     Active Substance: CYANOCOBALAMIN
     Dosage: DOSE UNKNOWN
     Route: 065
     Dates: start: 2010
  3. THALIDOMIDE [Concomitant]
     Active Substance: THALIDOMIDE
     Dosage: UNKNOWN DOSE
     Route: 065
     Dates: start: 201408, end: 201412
  4. RED BLOOD CELLS [Concomitant]
     Active Substance: HUMAN RED BLOOD CELL
     Dosage: UNKNOWN DOSE,128 TOTAL
     Route: 051
  5. CYKLOKAPRON [Concomitant]
     Active Substance: TRANEXAMIC ACID
     Dosage: 1000MG
     Route: 048
     Dates: start: 201105
  6. FERINJECT [Suspect]
     Active Substance: FERRIC CARBOXYMALTOSE
     Dosage: 1000 MG,2 TOTAL
     Dates: start: 20100913, end: 20101102
  7. VENOFER [Suspect]
     Active Substance: IRON SUCROSE
     Dosage: 200MG,26 TOTAL
     Route: 042
     Dates: start: 20150715, end: 20160920
  8. SANDOSTATIN LAR DEPOT [Concomitant]
     Active Substance: OCTREOTIDE ACETATE
     Dosage: DOSE UNKNOWN
     Route: 065

REACTIONS (6)
  - Brain cancer metastatic [Fatal]
  - Condition aggravated [Fatal]
  - Squamous cell carcinoma of lung [Fatal]
  - Hypophosphataemia [Fatal]
  - Neoplasm progression [Fatal]
  - Ophthalmic herpes zoster [Fatal]

NARRATIVE: CASE EVENT DATE: 201405
